FAERS Safety Report 7901303-6 (Version None)
Quarter: 2011Q4

REPORT INFORMATION
  Report Type: 
  Country: None (occurrence: None)
  Receive Date: 20111108
  Receipt Date: 20111103
  Transmission Date: 20120403
  Serious: Yes (Death)
  Sender: FDA-Public Use
  Company Number: PHHY2011PE097339

PATIENT
  Age: 59 Year
  Sex: Male

DRUGS (2)
  1. EXJADE [Suspect]
     Indication: SICKLE CELL ANAEMIA
     Dosage: 500 MG, TID
  2. HYDROXYUREA [Concomitant]
     Dosage: 2 G/DIA
     Route: 048

REACTIONS (1)
  - SUDDEN DEATH [None]
